FAERS Safety Report 21712920 (Version 3)
Quarter: 2023Q1

REPORT INFORMATION
  Report Type: Spontaneous
  Country: US (occurrence: US)
  Receive Date: 20221212
  Receipt Date: 20230213
  Transmission Date: 20230418
  Serious: No
  Sender: FDA-Public Use
  Company Number: US-SANOFI-01394271

PATIENT
  Age: 54 Year
  Sex: Female

DRUGS (1)
  1. DUPIXENT [Suspect]
     Active Substance: DUPILUMAB
     Indication: Chronic rhinosinusitis with nasal polyps
     Dosage: 300 MG, QOW
     Route: 058
     Dates: start: 202211, end: 20221202

REACTIONS (16)
  - Joint swelling [Not Recovered/Not Resolved]
  - Arthritis [Unknown]
  - Pain [Unknown]
  - Aphthous ulcer [Unknown]
  - Asthma [Unknown]
  - Gait disturbance [Recovered/Resolved]
  - Swelling face [Unknown]
  - Mouth ulceration [Recovered/Resolved]
  - Generalised oedema [Recovered/Resolved]
  - Dyspnoea [Recovered/Resolved]
  - Oral herpes [Unknown]
  - Arthralgia [Recovered/Resolved]
  - Rash [Not Recovered/Not Resolved]
  - Injection site reaction [Recovered/Resolved]
  - Injection site swelling [Recovered/Resolved]
  - Injection site erythema [Recovered/Resolved]

NARRATIVE: CASE EVENT DATE: 20221101
